FAERS Safety Report 5020255-2 (Version None)
Quarter: 2006Q2

REPORT INFORMATION
  Report Type: 
  Country: None (occurrence: None)
  Receive Date: 20060607
  Receipt Date: 20060526
  Transmission Date: 20061013
  Serious: Yes (Hospitalization, Other)
  Sender: FDA-Public Use
  Company Number: US-AVENTIS-200614843US

PATIENT
  Sex: Male
  Weight: 181.81 kg

DRUGS (17)
  1. LOVENOX [Suspect]
     Indication: THROMBOSIS PROPHYLAXIS
     Dates: start: 20060101, end: 20060526
  2. ALBUTEROL SULFATE AUTOHALER [Concomitant]
     Dosage: DOSE: UNK
     Route: 055
  3. DILTIAZEM [Concomitant]
     Dosage: DOSE: UNK
  4. K-DUR 10 [Concomitant]
     Dosage: DOSE: UNK
  5. LANOXIN [Concomitant]
     Dosage: DOSE: UNK
  6. XANAX [Concomitant]
     Dosage: DOSE: UNK
  7. PREVACID [Concomitant]
     Dosage: DOSE: UNK
  8. MYCOSTATIN [Concomitant]
     Dosage: DOSE: UNK
  9. ZOLOFT [Concomitant]
     Dosage: DOSE: UNK
  10. CARDIZEM [Concomitant]
     Dosage: DOSE: UNK
  11. ZELNORM [Concomitant]
     Dosage: DOSE: UNK
  12. VIDAYLIN [Concomitant]
     Dosage: DOSE: UNK
  13. BENADRYL [Concomitant]
     Dosage: DOSE: UNK
  14. OXYCODONE HCL [Concomitant]
     Dosage: DOSE: UNK
  15. GLUCAGON [Concomitant]
     Dosage: DOSE: UNK
  16. VENTOLIN [Concomitant]
     Dosage: DOSE: UNK
  17. DULCOLAX [Concomitant]
     Dosage: DOSE: UNK

REACTIONS (5)
  - EXTRADURAL ABSCESS [None]
  - MENTAL STATUS CHANGES [None]
  - OPERATIVE HAEMORRHAGE [None]
  - OSTEOMYELITIS [None]
  - PATHOLOGICAL FRACTURE [None]
